FAERS Safety Report 8119180-X (Version None)
Quarter: 2012Q1

REPORT INFORMATION
  Report Type: 
  Country: None (occurrence: None)
  Receive Date: 20120202
  Receipt Date: 20120126
  Transmission Date: 20120608
  Serious: Yes (Congenital Anomaly)
  Sender: FDA-Public Use
  Company Number: CL-380-2012

PATIENT
  Age: 1 Day
  Weight: 3.06 kg

DRUGS (1)
  1. ONDANSETRON [Suspect]
     Indication: HYPEREMESIS GRAVIDARUM
     Dosage: UNK UNK UNK

REACTIONS (2)
  - PELVIC KIDNEY [None]
  - MATERNAL DRUGS AFFECTING FOETUS [None]
